FAERS Safety Report 5332004-9 (Version None)
Quarter: 2007Q2

REPORT INFORMATION
  Report Type: 
  Country: None (occurrence: None)
  Receive Date: 20070523
  Receipt Date: 20070515
  Transmission Date: 20071010
  Serious: Yes (Other)
  Sender: FDA-Public Use
  Company Number: PHEH2007US07588

PATIENT
  Age: 86 Year
  Sex: Female
  Weight: 70.748 kg

DRUGS (2)
  1. ZOMETA [Suspect]
     Indication: BREAST CANCER METASTATIC
     Dosage: 4 MG EVERY 3-4 WEEKS
     Route: 042
     Dates: start: 20010101
  2. HORMONES [Concomitant]

REACTIONS (3)
  - DENTAL CARE [None]
  - ORAL CAVITY FISTULA [None]
  - OSTEONECROSIS [None]
